FAERS Safety Report 10069979 (Version 1)
Quarter: 2014Q2

REPORT INFORMATION
  Report Type: Spontaneous
  Country: JP (occurrence: None)
  Receive Date: 20140408
  Receipt Date: 20140408
  Transmission Date: 20141212
  Serious: Yes (Hospitalization)
  Sender: FDA-Public Use
  Company Number: 2014HINLIT0313

PATIENT
  Age: 58 Year
  Sex: Male

DRUGS (3)
  1. LOPINAVIR + RITONAVIR [Suspect]
     Indication: HIV INFECTION
  2. EMTRICITABINE/TENOFOVIR DISOPROXIL FUMARATE [Concomitant]
  3. DARUNAVIR/RITONAVIR [Concomitant]

REACTIONS (2)
  - Sick sinus syndrome [None]
  - Arrhythmia [None]
